FAERS Safety Report 6474379-3 (Version None)
Quarter: 2009Q4

REPORT INFORMATION
  Report Type: 
  Country: None (occurrence: None)
  Receive Date: 20091128
  Receipt Date: 20091109
  Transmission Date: 20100525
  Serious: Yes (Other)
  Sender: FDA-Public Use
  Company Number: THYM-1000920

PATIENT
  Age: 12 Year
  Sex: Female
  Weight: 50 kg

DRUGS (9)
  1. THYMOGLOBULIN [Suspect]
     Indication: APLASTIC ANAEMIA
     Dosage: 5 MG, ONCE, INTRAVENOUS; 158 MG, ONCE, INTRAVENOUS
     Route: 042
     Dates: start: 20090218, end: 20090218
  2. THYMOGLOBULIN [Suspect]
     Indication: APLASTIC ANAEMIA
     Dosage: 5 MG, ONCE, INTRAVENOUS; 158 MG, ONCE, INTRAVENOUS
     Route: 042
     Dates: start: 20090218, end: 20090218
  3. METHYLPREDNISOLOEN SODIUM SUCCINATE (METHYLPREDNISOLONE SODIUM SUCCINA [Concomitant]
  4. CICOSPORIN (CICLOSPORIN) [Concomitant]
  5. CHLORPHENIRAMINE MALEATE (CHLORPHENAMINE MELEATE) [Concomitant]
  6. AMPHOTERCIN B (AMPHOTERCIN B) [Concomitant]
  7. SULFAMETOXAOL MED TRIMETOPRIM (SULFAMETHOXAZOLE, TRIMETHOPRIM) [Concomitant]
  8. POLYMYXIN  SULFATE (POLYMYXIN B SULFATE) [Concomitant]
  9. LYMPHOGLOBULINE (ANTITHYMOCYTE IMMUNOGLOBULIN) [Concomitant]

REACTIONS (10)
  - CHEST PAIN [None]
  - DISSEMINATED INTRAVASCULAR COAGULATION [None]
  - DRUG HYPERSENSITIVITY [None]
  - DRUG INEFFECTIVE [None]
  - HAEMOGLOBIN DECREASED [None]
  - ILEUS [None]
  - LYMPHADENOPATHY [None]
  - LYMPHOCYTE PERCENTAGE DECREASED [None]
  - TACHYCARDIA [None]
  - WHITE BLOOD CELL COUNT DECREASED [None]
